FAERS Safety Report 19750079 (Version 3)
Quarter: 2022Q1

REPORT INFORMATION
  Report Type: Report from Study
  Country: CA (occurrence: CA)
  Receive Date: 20210826
  Receipt Date: 20220329
  Transmission Date: 20220423
  Serious: Yes (Hospitalization, Other)
  Sender: FDA-Public Use
  Company Number: CA-ABBVIE-21K-028-4054514-00

PATIENT
  Sex: Female

DRUGS (1)
  1. LUPRON DEPOT [Suspect]
     Active Substance: LEUPROLIDE ACETATE
     Indication: Endometriosis
     Route: 030
     Dates: start: 2021, end: 202112

REACTIONS (3)
  - Post procedural complication [Unknown]
  - Endometriosis [Unknown]
  - Pain [Unknown]

NARRATIVE: CASE EVENT DATE: 20210101
